FAERS Safety Report 7901018-4 (Version None)
Quarter: 2011Q4

REPORT INFORMATION
  Report Type: 
  Country: None (occurrence: None)
  Receive Date: 20111108
  Receipt Date: 20111104
  Transmission Date: 20120403
  Serious: Yes (Other)
  Sender: FDA-Public Use
  Company Number: US-PFIZER INC-2011270025

PATIENT
  Sex: Female
  Weight: 62.6 kg

DRUGS (7)
  1. PREMARIN [Suspect]
     Indication: HYSTERECTOMY
     Dosage: 0.3 MG, 1X/DAY
     Route: 048
     Dates: start: 19910101, end: 20110101
  2. CALCIUM CARBONATE [Concomitant]
     Dosage: UNK
  3. PREMARIN [Suspect]
     Dosage: UNK, 3X/WEEK
     Route: 067
     Dates: start: 20110101, end: 20110101
  4. ASPIRIN [Concomitant]
     Dosage: 81 MG, UNK
  5. PREMARIN [Suspect]
     Dosage: UNK; 2X/WEEK
     Dates: start: 20110101
  6. ALLEGRA [Concomitant]
     Dosage: UNK
  7. PREMARIN [Suspect]
     Indication: OESTROGEN REPLACEMENT THERAPY

REACTIONS (5)
  - URTICARIA [None]
  - VULVOVAGINAL PAIN [None]
  - VULVOVAGINAL DISCOMFORT [None]
  - DRUG INEFFECTIVE [None]
  - BREAST CYST [None]
